FAERS Safety Report 8553323-9 (Version None)
Quarter: 2012Q2

REPORT INFORMATION
  Report Type: 
  Country: None (occurrence: None)
  Receive Date: 20120417
  Receipt Date: 20110812
  Transmission Date: 20120825
  Serious: Yes (Other)
  Sender: FDA-Public Use
  Company Number: 11-484

PATIENT
  Age: 37 Year
  Sex: Male

DRUGS (1)
  1. NAPROXEN SODIUM [Suspect]
     Indication: PAIN MANAGEMENT
     Dosage: 1DF / ONCE / ORAL
     Route: 048
     Dates: start: 20110809

REACTIONS (1)
  - DYSPNOEA [None]
